FAERS Safety Report 18268896 (Version 2)
Quarter: 2020Q4

REPORT INFORMATION
  Report Type: Report from Study
  Country: EG (occurrence: EG)
  Receive Date: 20200915
  Receipt Date: 20201007
  Transmission Date: 20210113
  Serious: Yes (Death)
  Sender: FDA-Public Use
  Company Number: EG-SEATTLE GENETICS-2020SGN01383

PATIENT
  Sex: Male

DRUGS (1)
  1. BRENTUXIMAB VEDOTIN [Suspect]
     Active Substance: BRENTUXIMAB VEDOTIN
     Indication: HODGKIN^S DISEASE
     Dosage: UNK, Q3WEEKS
     Route: 042
     Dates: start: 20191026

REACTIONS (5)
  - Cough [Unknown]
  - Crepitations [Unknown]
  - Death [Fatal]
  - Pyrexia [Unknown]
  - Chest discomfort [Unknown]
